FAERS Safety Report 20099801 (Version 4)
Quarter: 2021Q4

REPORT INFORMATION
  Report Type: Report from Study
  Country: JP (occurrence: JP)
  Receive Date: 20211123
  Receipt Date: 20211230
  Transmission Date: 20220303
  Serious: Yes (Hospitalization, Other)
  Sender: FDA-Public Use
  Company Number: JP-ORPHANEU-2020003499

PATIENT

DRUGS (11)
  1. PASIREOTIDE [Suspect]
     Active Substance: PASIREOTIDE
     Indication: Pituitary-dependent Cushing^s syndrome
     Dosage: 10 MILLIGRAM
     Route: 030
     Dates: start: 20200401, end: 20200401
  2. PASIREOTIDE [Suspect]
     Active Substance: PASIREOTIDE
     Dosage: 10 MILLIGRAM
     Route: 030
     Dates: start: 20200430, end: 20200430
  3. PASIREOTIDE [Suspect]
     Active Substance: PASIREOTIDE
     Dosage: 10 MILLIGRAM
     Route: 030
     Dates: start: 20200601, end: 20200601
  4. PASIREOTIDE [Suspect]
     Active Substance: PASIREOTIDE
     Dosage: 10 MILLIGRAM
     Route: 030
     Dates: start: 20200706, end: 20200706
  5. PASIREOTIDE [Suspect]
     Active Substance: PASIREOTIDE
     Dosage: 15 MILLIGRAM
     Route: 030
     Dates: start: 20200806, end: 20200806
  6. PASIREOTIDE [Suspect]
     Active Substance: PASIREOTIDE
     Dosage: 15 MILLIGRAM
     Route: 030
     Dates: start: 20200916, end: 20200916
  7. PASIREOTIDE [Suspect]
     Active Substance: PASIREOTIDE
     Dosage: 15 MILLIGRAM
     Route: 030
     Dates: start: 20201014, end: 20201014
  8. PASIREOTIDE [Suspect]
     Active Substance: PASIREOTIDE
     Dosage: 15 MILLIGRAM
     Route: 030
     Dates: start: 20201113, end: 20201113
  9. PASIREOTIDE [Suspect]
     Active Substance: PASIREOTIDE
     Dosage: 15 MILLIGRAM
     Route: 030
     Dates: start: 20201216, end: 20201216
  10. PASIREOTIDE [Suspect]
     Active Substance: PASIREOTIDE
     Dosage: 15 MILLIGRAM
     Route: 030
     Dates: start: 20210113, end: 20210113
  11. PASIREOTIDE [Suspect]
     Active Substance: PASIREOTIDE
     Dosage: 15 MILLIGRAM
     Route: 030
     Dates: start: 20210218, end: 20210218

REACTIONS (13)
  - Anal abscess [Recovered/Resolved]
  - Malaise [Recovering/Resolving]
  - Diarrhoea [Recovered/Resolved]
  - Diarrhoea [Recovered/Resolved]
  - Diarrhoea [Recovered/Resolved]
  - Diarrhoea [Recovered/Resolved]
  - Diarrhoea [Recovered/Resolved]
  - Diarrhoea [Recovered/Resolved]
  - Diarrhoea [Recovered/Resolved]
  - Diarrhoea [Recovered/Resolved]
  - Diarrhoea [Recovered/Resolved]
  - Diarrhoea [Recovered/Resolved]
  - Diarrhoea [Recovered/Resolved]

NARRATIVE: CASE EVENT DATE: 20200402
